FAERS Safety Report 14667094 (Version 1)
Quarter: 2018Q1

REPORT INFORMATION
  Report Type: Spontaneous
  Country: SE (occurrence: SE)
  Receive Date: 20180322
  Receipt Date: 20180322
  Transmission Date: 20180509
  Serious: Yes (Hospitalization)
  Sender: FDA-Public Use
  Company Number: SE-CONCORDIA PHARMACEUTICALS INC.-GSH201803-000999

PATIENT
  Age: 85 Year
  Sex: Female

DRUGS (2)
  1. MIRTAZAPINE. [Suspect]
     Active Substance: MIRTAZAPINE
  2. DIGOXIN. [Suspect]
     Active Substance: DIGOXIN

REACTIONS (2)
  - Decreased appetite [Unknown]
  - Status epilepticus [Unknown]
